FAERS Safety Report 12355139 (Version 1)
Quarter: 2016Q2

REPORT INFORMATION
  Report Type: Spontaneous
  Country: CA (occurrence: CA)
  Receive Date: 20160511
  Receipt Date: 20160511
  Transmission Date: 20160815
  Serious: No
  Sender: FDA-Public Use
  Company Number: CA-WARNER CHILCOTT, LLC-1051869

PATIENT
  Age: 59 Year
  Sex: Female

DRUGS (2)
  1. ACTONEL [Suspect]
     Active Substance: RISEDRONATE SODIUM
     Indication: FRACTURE
     Route: 048
     Dates: start: 20150512
  2. OXYCODONE [Concomitant]
     Active Substance: OXYCODONE

REACTIONS (7)
  - Pain in extremity [Recovering/Resolving]
  - Palpitations [Recovering/Resolving]
  - Pyrexia [Recovering/Resolving]
  - Insomnia [Recovering/Resolving]
  - Chills [Recovering/Resolving]
  - Abdominal pain upper [Not Recovered/Not Resolved]
  - Chest pain [Recovering/Resolving]
